FAERS Safety Report 14003990 (Version 1)
Quarter: 2017Q3

REPORT INFORMATION
  Report Type: Spontaneous
  Country: US (occurrence: US)
  Receive Date: 20170922
  Receipt Date: 20170922
  Transmission Date: 20171128
  Serious: No
  Sender: FDA-Public Use
  Company Number: US-JNJFOC-20170906403

PATIENT
  Age: 63 Year
  Sex: Female

DRUGS (12)
  1. VECTOMEGA [Concomitant]
     Route: 065
  2. ESTRADIOL. [Concomitant]
     Active Substance: ESTRADIOL
     Route: 065
  3. CHLORZOXAZONE. [Concomitant]
     Active Substance: CHLORZOXAZONE
     Indication: ARTHRALGIA
     Route: 065
  4. FLONASE [Concomitant]
     Active Substance: FLUTICASONE PROPIONATE
     Route: 055
  5. VITAMIN B12 [Concomitant]
     Active Substance: CYANOCOBALAMIN
     Route: 060
  6. PENNSAID [Concomitant]
     Active Substance: DICLOFENAC SODIUM
     Indication: ARTHRALGIA
     Route: 061
  7. VITAMIN D3 [Concomitant]
     Active Substance: CHOLECALCIFEROL
     Route: 065
  8. KETOROLAC [Concomitant]
     Active Substance: KETOROLAC\KETOROLAC TROMETHAMINE
     Route: 065
  9. COQ10 [Concomitant]
     Active Substance: UBIDECARENONE
     Route: 065
  10. UNITHROID [Concomitant]
     Active Substance: LEVOTHYROXINE SODIUM
     Route: 065
  11. OFLOXACIN. [Concomitant]
     Active Substance: OFLOXACIN
     Route: 065
  12. REMICADE [Suspect]
     Active Substance: INFLIXIMAB
     Indication: PSORIATIC ARTHROPATHY
     Route: 042
     Dates: start: 20170630

REACTIONS (6)
  - Abdominal tenderness [Not Recovered/Not Resolved]
  - Pyrexia [Not Recovered/Not Resolved]
  - Ear infection [Not Recovered/Not Resolved]
  - Diarrhoea [Recovered/Resolved]
  - Chills [Recovered/Resolved]
  - Sinusitis [Not Recovered/Not Resolved]

NARRATIVE: CASE EVENT DATE: 20170901
